FAERS Safety Report 8588551-X (Version None)
Quarter: 2012Q3

REPORT INFORMATION
  Report Type: 
  Country: None (occurrence: None)
  Receive Date: 20120813
  Receipt Date: 20120806
  Transmission Date: 20120928
  Serious: Yes (Other)
  Sender: FDA-Public Use
  Company Number: JP-VERTEX PHARMACEUTICALS INC.-AE-2012-009392

PATIENT
  Age: 61 Year
  Sex: Male

DRUGS (10)
  1. PEGINTERFERON ALFA-2B [Concomitant]
     Route: 058
     Dates: start: 20120517
  2. TELAVIC [Suspect]
     Indication: HEPATITIS C
     Route: 048
     Dates: start: 20120510, end: 20120731
  3. REBETOL [Concomitant]
     Indication: HEPATITIS C
     Route: 048
     Dates: start: 20120509, end: 20120529
  4. PEGINTERFERON ALFA-2B [Concomitant]
     Indication: HEPATITIS C
     Route: 058
     Dates: start: 20120509, end: 20120516
  5. GLYCYRON [Concomitant]
     Route: 048
  6. CANDESARTAN CILEXETIL [Concomitant]
     Route: 048
  7. OLOPATADINE HCL [Concomitant]
     Route: 048
     Dates: start: 20120510
  8. AMLODIPINE BESYLATE [Concomitant]
     Route: 048
     Dates: start: 20120512
  9. DISOPYRAMIDE PHOSPHATE [Concomitant]
     Route: 048
  10. REBETOL [Concomitant]
     Route: 048
     Dates: start: 20120530

REACTIONS (2)
  - NEUTROPHIL COUNT DECREASED [None]
  - RENAL IMPAIRMENT [None]
